FAERS Safety Report 16037213 (Version 3)
Quarter: 2024Q3

REPORT INFORMATION
  Report Type: Spontaneous
  Country: DE (occurrence: DE)
  Receive Date: 20190305
  Receipt Date: 20240708
  Transmission Date: 20241017
  Serious: Yes (Congenital Anomaly, Other)
  Sender: MYLAN
  Company Number: DE-009507513-1808DEU008532

PATIENT

DRUGS (13)
  1. CLINDAMYCIN [Suspect]
     Active Substance: CLINDAMYCIN
     Indication: Antibiotic prophylaxis
     Dosage: 600 MG, UNK
  2. FENTANYL [Suspect]
     Active Substance: FENTANYL\FENTANYL CITRATE
     Indication: Endotracheal intubation
     Dosage: 0.2 MILLIGRAM
     Route: 064
  3. REMIFENTANIL [Suspect]
     Active Substance: REMIFENTANIL
     Indication: Maintenance of anaesthesia
     Dosage: 0.12 MICRO-G/KG/MIN
     Route: 064
  4. REMIFENTANIL [Suspect]
     Active Substance: REMIFENTANIL
     Dosage: 0.12 PG/KG/MIN
     Route: 064
  5. ROCURONIUM [Suspect]
     Active Substance: ROCURONIUM BROMIDE
     Indication: Endotracheal intubation
     Dosage: 70 MILLIGRAM
     Route: 064
  6. ROCURONIUM [Suspect]
     Active Substance: ROCURONIUM BROMIDE
     Indication: Maintenance of anaesthesia
     Dosage: 10 MILLIGRAM (10 MG EACH, REPEATED DOSES)
     Route: 064
  7. THIOPENTAL SODIUM [Suspect]
     Active Substance: THIOPENTAL SODIUM
     Indication: Endotracheal intubation
     Dosage: 450 MILLIGRAM
     Route: 064
  8. EPINEPHRINE [Suspect]
     Active Substance: EPINEPHRINE
     Indication: Anaesthesia
     Dosage: 0.02 MICRO-G/KG/MIN
     Route: 064
  9. EPINEPHRINE [Suspect]
     Active Substance: EPINEPHRINE
     Indication: Hypotension
     Dosage: 0.01 MICRO-G/KG/MIN
     Route: 064
  10. EPINEPHRINE [Suspect]
     Active Substance: EPINEPHRINE
     Dosage: 0.01 PG/KG/MIN
     Route: 064
  11. ATOSIBAN [Suspect]
     Active Substance: ATOSIBAN
     Indication: Product used for unknown indication
     Dosage: UNK
     Route: 064
  12. DESFLURANE [Suspect]
     Active Substance: DESFLURANE
     Indication: Maintenance of anaesthesia
     Dosage: 3.9-4.6% VOL
     Route: 064
  13. GENTAMICIN SULFATE [Suspect]
     Active Substance: GENTAMICIN SULFATE
     Indication: Antibiotic prophylaxis
     Dosage: 120 MILLIGRAM
     Route: 065

REACTIONS (4)
  - Congenital bladder anomaly [Unknown]
  - Anorectal disorder [Unknown]
  - Premature baby [Unknown]
  - Foetal exposure during pregnancy [Recovered/Resolved]
